FAERS Safety Report 6335416-X (Version None)
Quarter: 2009Q3

REPORT INFORMATION
  Report Type: 
  Country: None (occurrence: None)
  Receive Date: 20090831
  Receipt Date: 20090824
  Transmission Date: 20100115
  Serious: Yes (Other)
  Sender: FDA-Public Use
  Company Number: PHHY2009DE34749

PATIENT
  Age: 38 Year
  Sex: Male

DRUGS (1)
  1. SEBIVO [Suspect]
     Indication: CHRONIC HEPATITIS
     Dosage: 1 DF, QD
     Dates: end: 20090401

REACTIONS (5)
  - DYSSTASIA [None]
  - MUSCULAR DYSTROPHY [None]
  - MYOPATHY [None]
  - NEUROPATHY PERIPHERAL [None]
  - TRENDELENBURG'S SYMPTOM [None]
